FAERS Safety Report 16770787 (Version 1)
Quarter: 2019Q3

REPORT INFORMATION
  Report Type: Spontaneous
  Country: US (occurrence: US)
  Receive Date: 20190904
  Receipt Date: 20190904
  Transmission Date: 20191005
  Serious: Yes (Hospitalization)
  Sender: FDA-Public Use
  Company Number: US-HORIZON-ACT-0244-2019

PATIENT
  Age: 11 Year
  Sex: Male

DRUGS (3)
  1. BACTRIM [Concomitant]
     Active Substance: SULFAMETHOXAZOLE\TRIMETHOPRIM
  2. LEVAQUIN [Concomitant]
     Active Substance: LEVOFLOXACIN
  3. ACTIMMUNE [Suspect]
     Active Substance: INTERFERON GAMMA-1B
     Indication: CHRONIC GRANULOMATOUS DISEASE
     Dosage: 0.2 ML THREE TIMES WEEKLY (MWF)
     Dates: start: 20090608

REACTIONS (1)
  - Enterocolitis infectious [Unknown]

NARRATIVE: CASE EVENT DATE: 20190828
